FAERS Safety Report 4687743-X (Version None)
Quarter: 2005Q2

REPORT INFORMATION
  Report Type: 
  Country: None (occurrence: None)
  Receive Date: 20050610
  Receipt Date: 20050309
  Transmission Date: 20051028
  Serious: Yes (Hospitalization, Disabling)
  Sender: FDA-Public Use
  Company Number: US-MERCK-0503USA01697

PATIENT
  Age: 31 Year
  Sex: Female
  Weight: 90 kg

DRUGS (2)
  1. VIOXX [Suspect]
     Indication: ARTHRITIS
     Route: 048
     Dates: start: 20020801, end: 20040101
  2. PREMARIN [Concomitant]
     Route: 065
     Dates: start: 20021201, end: 20040601

REACTIONS (12)
  - BRADYCARDIA [None]
  - CEREBROVASCULAR ACCIDENT [None]
  - CHEST PAIN [None]
  - CYST [None]
  - DYSPNOEA [None]
  - EMOTIONAL DISTRESS [None]
  - GALLBLADDER DISORDER [None]
  - PAIN [None]
  - POLYTRAUMATISM [None]
  - POST-TRAUMATIC STRESS DISORDER [None]
  - SYNCOPE [None]
  - ULCER [None]
